FAERS Safety Report 7969933-3 (Version None)
Quarter: 2011Q4

REPORT INFORMATION
  Report Type: 
  Country: None (occurrence: None)
  Receive Date: 20111212
  Receipt Date: 20111205
  Transmission Date: 20120403
  Serious: Yes (Life-Threatening, Other)
  Sender: FDA-Public Use
  Company Number: DK-BRISTOL-MYERS SQUIBB COMPANY-16068009

PATIENT
  Age: 32 Year
  Sex: Male

DRUGS (8)
  1. ABILIFY [Suspect]
     Indication: DEPRESSION
     Dosage: INTERRUPTED AND RESTARTED WITH 15MG
     Route: 048
  2. PANTOPRAZOLE SODIUM [Concomitant]
  3. CLOZAPINE [Suspect]
     Indication: MENTAL DISORDER
     Dosage: INTERRRUPTED AND RESTARTED WITH 200 MG
     Route: 048
  4. BUPRENEX [Concomitant]
  5. METOPROLOL SUCCINATE [Concomitant]
  6. SIMVASTATIN [Concomitant]
  7. DULOXETINE HYDROCHLORIDE [Suspect]
     Indication: DEPRESSION
     Dosage: GASTRO RESISTANT CAPSULE HARD
     Route: 048
  8. CYMBALTA [Suspect]
     Indication: DEPRESSION
     Dosage: GASTRO RESISTANT CAPSULE, HARD INTERRUPTED AND RESTARTED WITH 60MG
     Route: 048

REACTIONS (17)
  - HYPOPHAGIA [None]
  - ELECTROCARDIOGRAM QRS COMPLEX SHORTENED [None]
  - ELECTROCARDIOGRAM ST SEGMENT DEPRESSION [None]
  - C-REACTIVE PROTEIN INCREASED [None]
  - SUICIDAL IDEATION [None]
  - OVERDOSE [None]
  - FLUID INTAKE REDUCED [None]
  - HALLUCINATION [None]
  - DECUBITUS ULCER [None]
  - NEUROLEPTIC MALIGNANT SYNDROME [None]
  - TOXICITY TO VARIOUS AGENTS [None]
  - PNEUMONIA [None]
  - OXYGEN SATURATION DECREASED [None]
  - DEPRESSED LEVEL OF CONSCIOUSNESS [None]
  - BEDRIDDEN [None]
  - HALLUCINATIONS, MIXED [None]
  - PSYCHOTIC DISORDER [None]
